FAERS Safety Report 8394169-4 (Version None)
Quarter: 2012Q2

REPORT INFORMATION
  Report Type: 
  Country: None (occurrence: None)
  Receive Date: 20120530
  Receipt Date: 20120520
  Transmission Date: 20120825
  Serious: Yes (Other)
  Sender: FDA-Public Use
  Company Number: US-US-EMD SERONO, INC.-7134340

PATIENT
  Sex: Female

DRUGS (3)
  1. REBIF [Suspect]
     Indication: MULTIPLE SCLEROSIS
     Route: 058
     Dates: start: 20031128
  2. MOTRIN [Concomitant]
     Indication: ARTHRITIS
  3. MOTRIN [Concomitant]
     Indication: FIBROMYALGIA

REACTIONS (5)
  - ARTHRITIS [None]
  - FOOT DEFORMITY [None]
  - HYPERHIDROSIS [None]
  - IRRITABILITY [None]
  - PAIN [None]
